FAERS Safety Report 23082208 (Version 1)
Quarter: 2023Q4

REPORT INFORMATION
  Report Type: Spontaneous
  Country: DE (occurrence: DE)
  Receive Date: 20231019
  Receipt Date: 20231019
  Transmission Date: 20240110
  Serious: Yes (Other)
  Sender: FDA-Public Use
  Company Number: None

PATIENT

DRUGS (2)
  1. LAMOTRIGINE [Suspect]
     Active Substance: LAMOTRIGINE
     Indication: Epilepsy
     Dosage: 450 MG, QD (200-50-200 MG/D, AND COMPLETE PREGNANCY)
     Route: 064
  2. LAMOTRIGINE [Suspect]
     Active Substance: LAMOTRIGINE
     Dosage: 450 MG, QD (200-50-200 MG/D, AND COMPLETE PREGNANCY)
     Route: 063

REACTIONS (4)
  - Hypotonia neonatal [Recovering/Resolving]
  - Dysphagia [Recovering/Resolving]
  - Foetal exposure during pregnancy [Unknown]
  - Exposure via breast milk [Unknown]
